FAERS Safety Report 4839097-3 (Version None)
Quarter: 2005Q4

REPORT INFORMATION
  Report Type: 
  Country: None (occurrence: None)
  Receive Date: 20051129
  Receipt Date: 20050602
  Transmission Date: 20060501
  Serious: Yes (Hospitalization)
  Sender: FDA-Public Use
  Company Number: HCM-0084

PATIENT
  Age: 76 Year
  Sex: Female

DRUGS (21)
  1. HYCAMTIN [Suspect]
     Route: 042
     Dates: start: 20050131, end: 20050224
  2. CISPLATIN [Suspect]
     Indication: DRUG USE FOR UNKNOWN INDICATION
     Dosage: 35MG PER DAY
     Route: 042
     Dates: start: 20050131, end: 20050224
  3. FUROSEMIDE [Concomitant]
     Dosage: 20MG PER DAY
     Route: 048
  4. LANSOPRAZOLE [Concomitant]
     Dosage: 15MG PER DAY
     Route: 048
  5. ASPIRIN [Concomitant]
     Dosage: 100MG PER DAY
     Route: 048
  6. METHYLDIGOXIN [Concomitant]
     Dosage: .025MG PER DAY
     Route: 048
  7. LEVOTHYROXINE SODIUM [Concomitant]
     Dosage: 25MG PER DAY
     Route: 048
  8. PRAVASTATIN SODIUM [Concomitant]
     Dosage: 10MG PER DAY
     Route: 048
  9. ISOSORBIDE DINITRATE [Concomitant]
     Dosage: 40MG PER DAY
     Route: 048
  10. SPIRONOLACTONE [Concomitant]
     Dosage: 50MG PER DAY
     Route: 048
  11. CILOSTAZOL [Concomitant]
     Dosage: 100MG PER DAY
     Route: 048
  12. EPALRESTAT [Concomitant]
     Dosage: 150MG PER DAY
     Route: 048
  13. FLAVINE ADENINE DINUCLEOTIDE [Concomitant]
     Dosage: 10MG PER DAY
     Route: 048
  14. BEPOTASTINE BESILATE [Concomitant]
     Dosage: 20MG PER DAY
     Route: 048
  15. QEURCUS SALICINA [Concomitant]
     Dosage: 1350MG PER DAY
     Route: 048
  16. TULOBUTEROL [Concomitant]
  17. ISOSORBIDE DINITRATE [Concomitant]
     Dosage: 40MG PER DAY
  18. INSULIN ASPART [Concomitant]
     Dosage: 16IU PER DAY
     Route: 058
  19. INSULIN GLARGINE [Concomitant]
     Dosage: 8IU PER DAY
     Route: 058
  20. DEXAMETHASONE SODIUM PHOSPHATE [Concomitant]
     Dosage: 8MG PER DAY
     Route: 042
     Dates: start: 20050131, end: 20050224
  21. GRANISETRON  HCL [Concomitant]
     Dosage: 3MG PER DAY
     Route: 042
     Dates: start: 20050131, end: 20050224

REACTIONS (15)
  - ANAEMIA [None]
  - BLOOD ALBUMIN DECREASED [None]
  - BLOOD CALCIUM DECREASED [None]
  - BLOOD CHLORIDE INCREASED [None]
  - BLOOD LACTATE DEHYDROGENASE INCREASED [None]
  - BLOOD POTASSIUM INCREASED [None]
  - BLOOD UREA INCREASED [None]
  - HYPERKALAEMIA [None]
  - LYMPHOCYTE PERCENTAGE DECREASED [None]
  - MALAISE [None]
  - MONOCYTE COUNT INCREASED [None]
  - NEUTROPHIL COUNT DECREASED [None]
  - PLATELET COUNT DECREASED [None]
  - PROTEIN TOTAL DECREASED [None]
  - WHITE BLOOD CELL COUNT DECREASED [None]
